FAERS Safety Report 11890259 (Version 3)
Quarter: 2016Q1

REPORT INFORMATION
  Report Type: Spontaneous
  Country: US (occurrence: US)
  Receive Date: 20160105
  Receipt Date: 20160114
  Transmission Date: 20160526
  Serious: Yes (Death, Hospitalization, Other)
  Sender: FDA-Public Use
  Company Number: US-GLAXOSMITHKLINE-US2015GSK183682

PATIENT
  Sex: Female

DRUGS (3)
  1. FLOLAN [Suspect]
     Active Substance: EPOPROSTENOL SODIUM
     Indication: PULMONARY ARTERIAL HYPERTENSION
     Dosage: UNK 7 NG/KG/MIN (CONCENTRATION 15,000 NG/ML, PUMP RATE 55 ML/DAY AND 1.5 MG VIAL STRENGTH)
     Dates: start: 20151215
  2. FLOLAN [Suspect]
     Active Substance: EPOPROSTENOL SODIUM
     Dosage: 6 NG/KG/MIN CONTINUOUS (CONCENTRATION 15,000 NG/ML, PUMP RATE 55 ML/DAY, 1.5 MG VIAL STRENGTH)
     Dates: start: 20151215
  3. FLOLAN [Suspect]
     Active Substance: EPOPROSTENOL SODIUM
     Dosage: 7 NG/KG/MIN CONTINUOUS (CONCENTRATION 15,000 NG/ML, PUMP RATE 55 ML/DAY, 1.5 MG VIAL STRENGTH)
     Dates: start: 20151215

REACTIONS (4)
  - Death [Fatal]
  - Device related infection [Unknown]
  - Infusion site erythema [Unknown]
  - Infusion site reaction [Unknown]
